FAERS Safety Report 6978676-4 (Version None)
Quarter: 2010Q3

REPORT INFORMATION
  Report Type: 
  Country: None (occurrence: None)
  Receive Date: 20100913
  Receipt Date: 20100909
  Transmission Date: 20110219
  Serious: Yes (Hospitalization)
  Sender: FDA-Public Use
  Company Number: A0873136A

PATIENT
  Age: 53 Year
  Sex: Male

DRUGS (7)
  1. AVANDAMET [Suspect]
     Indication: DIABETES MELLITUS
     Route: 065
     Dates: end: 20100401
  2. SKELAXIN [Suspect]
     Indication: BACK INJURY
     Dosage: 800MG AS REQUIRED
     Route: 048
     Dates: start: 20100101, end: 20100401
  3. RAMIPRIL [Suspect]
     Indication: HYPERTENSION
     Route: 048
     Dates: start: 20090101, end: 20100228
  4. GLIMEPIRIDE [Concomitant]
     Route: 048
     Dates: start: 20080101
  5. MICARDIS [Concomitant]
     Indication: HYPERTENSION
     Route: 048
     Dates: start: 20100301
  6. WARFARIN SODIUM [Concomitant]
     Indication: ATRIAL FIBRILLATION
     Route: 048
     Dates: start: 20100205
  7. SIMVASTATIN [Concomitant]
     Route: 048
     Dates: start: 20100106

REACTIONS (8)
  - BLOOD PRESSURE INCREASED [None]
  - NONSPECIFIC REACTION [None]
  - OEDEMA [None]
  - ORAL MUCOSAL EXFOLIATION [None]
  - PYREXIA [None]
  - SKIN REACTION [None]
  - STEVENS-JOHNSON SYNDROME [None]
  - VOMITING [None]
